FAERS Safety Report 9851391 (Version 3)
Quarter: 2014Q2

REPORT INFORMATION
  Report Type: Report from Study
  Country: SK (occurrence: SK)
  Receive Date: 20140129
  Receipt Date: 20140505
  Transmission Date: 20141212
  Serious: Yes (Other)
  Sender: FDA-Public Use
  Company Number: SK-ROCHE-1336092

PATIENT
  Age: 62 Year
  Sex: Male
  Weight: 96 kg

DRUGS (3)
  1. RANIBIZUMAB [Suspect]
     Indication: DIABETIC RETINAL OEDEMA
     Route: 050
     Dates: start: 20130104
  2. RANIBIZUMAB [Suspect]
     Dosage: RIGHT EYE
     Route: 050
     Dates: start: 20130118
  3. RANIBIZUMAB [Suspect]
     Route: 050
     Dates: start: 20140118

REACTIONS (3)
  - Ocular hypertension [Recovered/Resolved]
  - Blindness transient [Recovered/Resolved]
  - Inappropriate schedule of drug administration [Unknown]
